FAERS Safety Report 9062449 (Version 5)
Quarter: 2013Q4

REPORT INFORMATION
  Report Type: Report from Study
  Country: DE (occurrence: DE)
  Receive Date: 20130213
  Receipt Date: 20131227
  Transmission Date: 20140711
  Serious: Yes (Hospitalization)
  Sender: FDA-Public Use
  Company Number: DE-ROCHE-1186774

PATIENT
  Age: 69 Year
  Sex: Female
  Weight: 66 kg

DRUGS (5)
  1. TRASTUZUMAB [Suspect]
     Indication: HER-2 POSITIVE BREAST CANCER
     Dosage: LOADING DOSE
     Route: 042
     Dates: start: 20121010
  2. TRASTUZUMAB [Suspect]
     Dosage: LAST DOSE PRIOR TO SAE: 24/JAN/2013
     Route: 042
  3. DOCETAXEL [Suspect]
     Indication: HER-2 POSITIVE BREAST CANCER
     Dosage: LAST DOSE PRIOR TO SAE: 24/JAN/2013
     Route: 042
     Dates: start: 20121010
  4. CARBOPLATIN [Suspect]
     Indication: HER-2 POSITIVE BREAST CANCER
     Dosage: 6 AUC, LAST DOSE PRIOR TO SAE: 24/JAN/2013
     Route: 042
     Dates: start: 20121010
  5. PERTUZUMAB [Suspect]
     Indication: HER-2 POSITIVE BREAST CANCER
     Dosage: LAST DOSE PRIOR TO SAE: 24/JAN/2013
     Route: 042
     Dates: start: 20121010

REACTIONS (3)
  - Pancytopenia [Recovering/Resolving]
  - Pneumonia [Recovered/Resolved]
  - Mental disorder [Recovered/Resolved]
